FAERS Safety Report 15639238 (Version 1)
Quarter: 2018Q4

REPORT INFORMATION
  Report Type: Spontaneous
  Country: IN (occurrence: IN)
  Receive Date: 20181120
  Receipt Date: 20181120
  Transmission Date: 20190205
  Serious: Yes (Death, Life-Threatening, Other)
  Sender: FDA-Public Use
  Company Number: IN-AVADEL LEGACY PHARMACEUTICALS, LLC-2018AVA00479

PATIENT
  Age: 70 Year
  Sex: Female
  Weight: 59 kg

DRUGS (1)
  1. PHENYLEPHRINE [Suspect]
     Active Substance: PHENYLEPHRINE\PHENYLEPHRINE HYDROCHLORIDE
     Dosage: 5%, ONCE

REACTIONS (7)
  - Hypertension [Not Recovered/Not Resolved]
  - Subarachnoid haemorrhage [Fatal]
  - Aneurysm ruptured [Fatal]
  - Intracranial pressure increased [Not Recovered/Not Resolved]
  - Unresponsive to stimuli [Not Recovered/Not Resolved]
  - Intracranial aneurysm [Not Recovered/Not Resolved]
  - Bradycardia [Not Recovered/Not Resolved]
